FAERS Safety Report 9638912 (Version 1)
Quarter: 2013Q4

REPORT INFORMATION
  Report Type: Spontaneous
  Country: US (occurrence: US)
  Receive Date: 20131022
  Receipt Date: 20131022
  Transmission Date: 20140711
  Serious: No
  Sender: FDA-Public Use
  Company Number: US-BRISTOL-MYERS SQUIBB COMPANY-19088897

PATIENT
  Age: 74 Year
  Sex: Female
  Weight: 76.19 kg

DRUGS (2)
  1. ELIQUIS [Suspect]
     Indication: ATRIAL FIBRILLATION
     Dosage: DOSE REDUCED TO 2.5MG.
  2. ELIQUIS [Suspect]
     Indication: CEREBROVASCULAR ACCIDENT PROPHYLAXIS
     Dosage: DOSE REDUCED TO 2.5MG.

REACTIONS (4)
  - Haematochezia [Unknown]
  - Joint swelling [Unknown]
  - Arthralgia [Unknown]
  - Drug prescribing error [Unknown]
